FAERS Safety Report 21207480 (Version 1)
Quarter: 2022Q3

REPORT INFORMATION
  Report Type: Spontaneous
  Country: FR (occurrence: FR)
  Receive Date: 20220812
  Receipt Date: 20220812
  Transmission Date: 20221027
  Serious: Yes (Hospitalization)
  Sender: FDA-Public Use
  Company Number: None

PATIENT
  Age: 74 Year
  Sex: Male
  Weight: 82.5 kg

DRUGS (12)
  1. ALPRAZOLAM [Suspect]
     Active Substance: ALPRAZOLAM
     Indication: Anxiety
     Dosage: UNIT DOSE :  0.5 MG, FREQUENCY TIME : 1 DAY, DURATION :2 DAYS
     Route: 065
     Dates: start: 20220517, end: 20220519
  2. ZOPICLONE [Suspect]
     Active Substance: ZOPICLONE
     Indication: Sleep disorder
     Dosage: UNIT DOSE :  3.75 MG, FREQUENCY TIME : 1 DAY , DURATION : 9 DAYS
     Route: 065
     Dates: start: 20220510, end: 20220519
  3. ATORVASTATIN [Suspect]
     Active Substance: ATORVASTATIN
     Indication: Dyslipidaemia
     Dosage: UNIT DOSE :  40MG, FREQUENCY TIME : 1 DAY, THERAPY START DATE  : NASK
     Route: 065
     Dates: end: 20220519
  4. RISPERIDONE [Suspect]
     Active Substance: RISPERIDONE
     Indication: Agitation
     Dosage: UNIT DOSE :  0.25 MG,  FREQUENCY TIME : 1 DAY ,DURATION : 6 DAYS
     Route: 065
     Dates: start: 20220513, end: 20220519
  5. CYAMEMAZINE [Suspect]
     Active Substance: CYAMEMAZINE
     Indication: Sleep disorder
     Dosage: UNIT DOSE :  25 MG, , FREQUENCY TIME : 1 DAY,  DURATION :1 DAY
     Route: 065
     Dates: start: 20220518, end: 20220519
  6. POTASSIUM CHLORIDE [Concomitant]
     Active Substance: POTASSIUM CHLORIDE
     Indication: Product used for unknown indication
  7. APIXABAN [Concomitant]
     Active Substance: APIXABAN
     Indication: Product used for unknown indication
  8. METFORMIN HYDROCHLORIDE [Concomitant]
     Active Substance: METFORMIN HYDROCHLORIDE
     Indication: Product used for unknown indication
  9. SERTRALINE HYDROCHLORIDE [Concomitant]
     Active Substance: SERTRALINE HYDROCHLORIDE
     Indication: Product used for unknown indication
  10. BISOPROLOL FUMARATE [Concomitant]
     Active Substance: BISOPROLOL FUMARATE
     Indication: Product used for unknown indication
  11. CLOPIDOGREL BESILATE [Concomitant]
     Active Substance: CLOPIDOGREL BESILATE
     Indication: Product used for unknown indication
  12. FUROSEMIDE [Concomitant]
     Active Substance: FUROSEMIDE
     Indication: Product used for unknown indication

REACTIONS (1)
  - Hepatic cytolysis [Recovered/Resolved]

NARRATIVE: CASE EVENT DATE: 20220519
